FAERS Safety Report 9683811 (Version 1)
Quarter: 2013Q4

REPORT INFORMATION
  Report Type: Spontaneous
  Country: US (occurrence: None)
  Receive Date: 20131111
  Receipt Date: 20131111
  Transmission Date: 20140711
  Serious: No
  Sender: FDA-Public Use
  Company Number: None

PATIENT
  Age: 74 Year
  Sex: Male
  Weight: 70 kg

DRUGS (1)
  1. OMNARIS [Suspect]
     Indication: RHINITIS
     Dosage: 2 PUFFS ONCE DAILY
     Route: 055
     Dates: start: 20021018, end: 20021020

REACTIONS (3)
  - Rash generalised [None]
  - Pruritus generalised [None]
  - Nausea [None]
